FAERS Safety Report 19544412 (Version 4)
Quarter: 2022Q1

REPORT INFORMATION
  Report Type: Spontaneous
  Country: JP (occurrence: JP)
  Receive Date: 20210713
  Receipt Date: 20220203
  Transmission Date: 20220424
  Serious: Yes (Hospitalization, Other)
  Sender: FDA-Public Use
  Company Number: JP-TAKEDA-2021TUS043011

PATIENT
  Age: 10 Year
  Sex: Male
  Weight: 28 kg

DRUGS (3)
  1. INTUNIV [Suspect]
     Active Substance: GUANFACINE HYDROCHLORIDE
     Indication: Attention deficit hyperactivity disorder
     Dosage: 1 MILLIGRAM, QD
     Route: 048
  2. INTUNIV [Suspect]
     Active Substance: GUANFACINE HYDROCHLORIDE
     Dosage: 6 MILLIGRAM, QD
     Route: 048
     Dates: start: 202007, end: 202007
  3. METHYLPHENIDATE HYDROCHLORIDE [Concomitant]
     Active Substance: METHYLPHENIDATE HYDROCHLORIDE
     Dosage: 27 MILLIGRAM, QD
     Route: 065

REACTIONS (6)
  - Gait disturbance [Recovered/Resolved]
  - Somnolence [Recovered/Resolved]
  - Pallor [Recovered/Resolved]
  - Bradycardia [Recovering/Resolving]
  - Blood pressure decreased [Recovering/Resolving]
  - Prescribed overdose [Recovered/Resolved]

NARRATIVE: CASE EVENT DATE: 20200701
